FAERS Safety Report 22196635 (Version 1)
Quarter: 2023Q2

REPORT INFORMATION
  Report Type: Spontaneous
  Country: US (occurrence: US)
  Receive Date: 20230411
  Receipt Date: 20230411
  Transmission Date: 20230722
  Serious: No
  Sender: FDA-Public Use
  Company Number: US-002147023-NVSC2023US082970

PATIENT
  Sex: Female

DRUGS (1)
  1. CIPRODEX [Suspect]
     Active Substance: CIPROFLOXACIN HYDROCHLORIDE\DEXAMETHASONE
     Indication: Product used for unknown indication
     Dosage: UNK, BID (2 X DAY)
     Route: 065
     Dates: start: 20230405

REACTIONS (3)
  - Tinnitus [Not Recovered/Not Resolved]
  - Product use issue [Unknown]
  - Product packaging quantity issue [Unknown]
